FAERS Safety Report 18566087 (Version 1)
Quarter: 2020Q4

REPORT INFORMATION
  Report Type: Spontaneous
  Country: US (occurrence: US)
  Receive Date: 20201201
  Receipt Date: 20201201
  Transmission Date: 20210114
  Serious: No
  Sender: FDA-Public Use
  Company Number: US-009507513-2011USA010639

PATIENT
  Age: 9 Year
  Sex: Male

DRUGS (2)
  1. ELOCON [Suspect]
     Active Substance: MOMETASONE FUROATE
     Indication: ERYTHEMA
     Dosage: UNK UNK, QD
  2. ELOCON [Suspect]
     Active Substance: MOMETASONE FUROATE
     Indication: PRURITUS

REACTIONS (1)
  - Rash pustular [Recovered/Resolved]
